FAERS Safety Report 17008005 (Version 1)
Quarter: 2019Q4

REPORT INFORMATION
  Report Type: Spontaneous
  Country: US (occurrence: US)
  Receive Date: 20191108
  Receipt Date: 20191108
  Transmission Date: 20200122
  Serious: No
  Sender: FDA-Public Use
  Company Number: US-GLAXOSMITHKLINE-US2019199197

PATIENT
  Sex: Female

DRUGS (1)
  1. ABREVA [Suspect]
     Active Substance: DOCOSANOL
     Indication: ORAL HERPES
     Dosage: UNK, SOMETIMES 4 TIMES A DAY AND SOMETIME 6 TIMES A DAY

REACTIONS (3)
  - Inappropriate schedule of product administration [Unknown]
  - Application site haemorrhage [Unknown]
  - Application site scab [Unknown]
